FAERS Safety Report 13028130 (Version 1)
Quarter: 2016Q4

REPORT INFORMATION
  Report Type: Spontaneous
  Country: US (occurrence: US)
  Receive Date: 20161214
  Receipt Date: 20161214
  Transmission Date: 20170207
  Serious: No
  Sender: FDA-Public Use
  Company Number: US-APOTEX-2016AP007199

PATIENT
  Sex: Female

DRUGS (1)
  1. FENTANYL TRANSDERMAL SYSTEM [Suspect]
     Active Substance: FENTANYL
     Indication: PRODUCT USED FOR UNKNOWN INDICATION
     Dosage: 2 PATCHES/48HRS
     Route: 062
     Dates: start: 201602

REACTIONS (18)
  - Detoxification [Unknown]
  - Feeling cold [Unknown]
  - Tremor [Unknown]
  - Product adhesion issue [Unknown]
  - Pain [Unknown]
  - Product leakage [Unknown]
  - Generalised erythema [Unknown]
  - Formication [Unknown]
  - Application site pruritus [Unknown]
  - Application site rash [Unknown]
  - Hot flush [Unknown]
  - Pruritus generalised [Unknown]
  - Inappropriate schedule of drug administration [Unknown]
  - Euphoric mood [Unknown]
  - Vomiting [Unknown]
  - Application site erythema [Unknown]
  - Rash generalised [Unknown]
  - Hyperhidrosis [Unknown]

NARRATIVE: CASE EVENT DATE: 201602
